FAERS Safety Report 24891409 (Version 1)
Quarter: 2025Q1

REPORT INFORMATION
  Report Type: Spontaneous
  Country: US (occurrence: US)
  Receive Date: 20250127
  Receipt Date: 20250127
  Transmission Date: 20250409
  Serious: No
  Sender: ALKERMES
  Company Number: US-ALKERMES INC.-ALK-2025-000114

PATIENT
  Age: 55 Year
  Sex: Male
  Weight: 72.562 kg

DRUGS (1)
  1. ARISTADA [Suspect]
     Active Substance: ARIPIPRAZOLE LAUROXIL
     Indication: Bipolar disorder
     Route: 030
     Dates: start: 20241111

REACTIONS (6)
  - Off label use [Unknown]
  - Hypertension [Recovering/Resolving]
  - Insomnia [Recovering/Resolving]
  - Tardive dyskinesia [Recovering/Resolving]
  - Musculoskeletal stiffness [Recovering/Resolving]
  - Weight decreased [Recovering/Resolving]

NARRATIVE: CASE EVENT DATE: 20241111
